FAERS Safety Report 15991394 (Version 1)
Quarter: 2019Q1

REPORT INFORMATION
  Report Type: Report from Study
  Country: DE (occurrence: DE)
  Receive Date: 20190221
  Receipt Date: 20190221
  Transmission Date: 20190418
  Serious: Yes (Death)
  Sender: FDA-Public Use
  Company Number: DE-PFIZER INC-2019079077

PATIENT
  Sex: Female

DRUGS (2)
  1. METHOTREXATE SODIUM. [Suspect]
     Active Substance: METHOTREXATE SODIUM
     Dosage: 15 MG, 1X/ WEEKLY
     Dates: end: 201612
  2. ENBREL [Suspect]
     Active Substance: ETANERCEPT
     Dosage: 25 MG, EVERY 7 DAYS
     Dates: end: 201612

REACTIONS (2)
  - Respiratory failure [Fatal]
  - Pneumonia [Fatal]
